FAERS Safety Report 9380143 (Version 2)
Quarter: 2013Q3

REPORT INFORMATION
  Report Type: Spontaneous
  Country: JP (occurrence: JP)
  Receive Date: 20130702
  Receipt Date: 20130815
  Transmission Date: 20140515
  Serious: Yes (Hospitalization, Other)
  Sender: FDA-Public Use
  Company Number: JP-PFIZER INC-2013190414

PATIENT
  Age: 78 Year
  Sex: Male

DRUGS (3)
  1. MINOCYCLINE [Suspect]
     Indication: POSTOPERATIVE WOUND INFECTION
  2. CLINDAMYCIN PHOSPHATE [Suspect]
     Indication: POSTOPERATIVE WOUND INFECTION
  3. DAPTOMYCIN [Suspect]
     Indication: POSTOPERATIVE WOUND INFECTION

REACTIONS (1)
  - Pneumonia [Recovered/Resolved]
